FAERS Safety Report 25629400 (Version 3)
Quarter: 2025Q4

REPORT INFORMATION
  Report Type: Spontaneous
  Country: US (occurrence: US)
  Receive Date: 20250731
  Receipt Date: 20251024
  Transmission Date: 20260117
  Serious: No
  Sender: BRISTOL-MYERS SQUIBB COMPANY
  Company Number: US-BRISTOL-MYERS SQUIBB COMPANY-2025-107057

PATIENT
  Age: 67 Year
  Sex: Female

DRUGS (2)
  1. LENALIDOMIDE [Suspect]
     Active Substance: LENALIDOMIDE
     Indication: Plasma cell myeloma
     Dosage: TAKE 1 CAPSULE BY MOUTH DAILY ON MONDAY, WEDNESDAY, AND FRIDAY FOR 3 WEEKS ON AND 1 WEEK OFF FOR A 28 DAY CYCLE
  2. LENALIDOMIDE [Suspect]
     Active Substance: LENALIDOMIDE
     Dosage: TAKE 1 CAPSULE BY MOUTH DAILY EVERY MONDAY WEDNESDAY + FRIDAY FOR 3 WEEKS ON AND?1 WEEK OFF FOR A 28 DAY CYCLE

REACTIONS (5)
  - Musculoskeletal pain [Unknown]
  - Product use issue [Unknown]
  - Pain [Not Recovered/Not Resolved]
  - Product distribution issue [Unknown]
  - Therapy interrupted [Unknown]
